FAERS Safety Report 17910552 (Version 1)
Quarter: 2020Q2

REPORT INFORMATION
  Report Type: Spontaneous
  Country: CN (occurrence: CN)
  Receive Date: 20200618
  Receipt Date: 20200618
  Transmission Date: 20200714
  Serious: Yes (Other)
  Sender: FDA-Public Use
  Company Number: CN-BAXTER-2020BAX012354

PATIENT
  Age: 49 Year
  Sex: Female
  Weight: 52 kg

DRUGS (5)
  1. 0.9% SODIUM CHLORIDE INJECTION [Suspect]
     Active Substance: SODIUM CHLORIDE
     Route: 033
     Dates: start: 20200601
  2. 0.9% SODIUM CHLORIDE INJECTION [Suspect]
     Active Substance: SODIUM CHLORIDE
     Indication: MEDICATION DILUTION
     Dosage: FIRST CHEMOTHERAPY; NORMAL SALINE 1500 ML + DDP 90 MG
     Route: 033
  3. HOLOXAN [Suspect]
     Active Substance: IFOSFAMIDE
     Indication: DISEASE RECURRENCE
     Dosage: SECOND CHEMOTHERAPY
     Route: 041
     Dates: start: 20200602, end: 20200602
  4. 0.9% SODIUM CHLORIDE INJECTION [Suspect]
     Active Substance: SODIUM CHLORIDE
     Dosage: SECOND CHEMOTHERAPY; NORMAL SALINE 500 ML + DDP 90 MG
     Route: 033
     Dates: start: 20200601
  5. HOLOXAN [Suspect]
     Active Substance: IFOSFAMIDE
     Indication: OVARIAN EPITHELIAL CANCER
     Dosage: FIRST CHEMOTHERAPY
     Route: 041

REACTIONS (2)
  - Rash [Recovering/Resolving]
  - Pruritus [Recovering/Resolving]

NARRATIVE: CASE EVENT DATE: 20200602
